FAERS Safety Report 5859508-4 (Version None)
Quarter: 2008Q3

REPORT INFORMATION
  Report Type: 
  Country: None (occurrence: None)
  Receive Date: 20080827
  Receipt Date: 20080822
  Transmission Date: 20090109
  Serious: Yes (Death)
  Sender: FDA-Public Use
  Company Number: A0729983A

PATIENT
  Age: 86 Year
  Sex: Male
  Weight: 75.9 kg

DRUGS (15)
  1. AVANDIA [Suspect]
     Indication: DIABETES MELLITUS
     Dosage: 4MG PER DAY
     Route: 048
     Dates: start: 20070425, end: 20070707
  2. METFORMIN HCL [Concomitant]
     Dates: end: 20070707
  3. DIABETA [Concomitant]
     Dates: end: 20070707
  4. FERROUS SULFATE TAB [Concomitant]
  5. ADVAIR DISKUS 100/50 [Concomitant]
  6. SYSTANE [Concomitant]
  7. LEXAPRO [Concomitant]
  8. VITAMIN B6 [Concomitant]
  9. BETOPTIC [Concomitant]
  10. VYTORIN [Concomitant]
  11. LEVOTHROID [Concomitant]
  12. TERAZOSIN HCL [Concomitant]
  13. PROPOXYPHENE NAPSYLATE AND ACETAMINOPHEN [Concomitant]
  14. XALATAN [Concomitant]
  15. FUROSEMIDE [Concomitant]

REACTIONS (3)
  - CARDIAC ARREST [None]
  - CARDIOMYOPATHY [None]
  - MYOCARDIAL INFARCTION [None]
